FAERS Safety Report 7367493-1 (Version None)
Quarter: 2011Q1

REPORT INFORMATION
  Report Type: 
  Country: None (occurrence: None)
  Receive Date: 20110322
  Receipt Date: 20110301
  Transmission Date: 20110831
  Serious: Yes (Other)
  Sender: FDA-Public Use
  Company Number: AU-JNJFOC-20110308078

PATIENT
  Age: 12 Year
  Sex: Female

DRUGS (1)
  1. BENADRYL PE CHESTY COUGH + NASAL CONGESTION [Suspect]
     Indication: INFLUENZA
     Dosage: EVERY FOUR TO FIVE HOURS
     Route: 048

REACTIONS (2)
  - STARING [None]
  - HALLUCINATION [None]
